FAERS Safety Report 5615232-4 (Version None)
Quarter: 2008Q1

REPORT INFORMATION
  Report Type: 
  Country: None (occurrence: None)
  Receive Date: 20080205
  Receipt Date: 20080205
  Transmission Date: 20080703
  Serious: Yes (Other)
  Sender: FDA-Public Use
  Company Number: None

PATIENT
  Age: 50 Year
  Sex: Female
  Weight: 72.5755 kg

DRUGS (3)
  1. PERIACTIN [Suspect]
     Indication: MIGRAINE PROPHYLAXIS
     Dosage: SMALL INITIAL DOSES DAILY PO
     Route: 048
     Dates: start: 19960101, end: 20080115
  2. DEPAKOTE [Suspect]
  3. NEURONTIN [Suspect]

REACTIONS (13)
  - DEPRESSION [None]
  - DIZZINESS [None]
  - DRUG INEFFECTIVE [None]
  - FAECES PALE [None]
  - FALL [None]
  - FORMICATION [None]
  - HEPATOCELLULAR INJURY [None]
  - LOSS OF LIBIDO [None]
  - PRURITUS [None]
  - SKIN DISORDER [None]
  - SUICIDAL IDEATION [None]
  - TREATMENT NONCOMPLIANCE [None]
  - WEIGHT INCREASED [None]
